FAERS Safety Report 16526470 (Version 10)
Quarter: 2020Q1

REPORT INFORMATION
  Report Type: Report from Study
  Country: US (occurrence: US)
  Receive Date: 20190703
  Receipt Date: 20200316
  Transmission Date: 20200409
  Serious: Yes (Hospitalization, Other)
  Sender: FDA-Public Use
  Company Number: US-ACTELION-A-NJ2019-192526

PATIENT
  Age: 66 Year
  Sex: Female
  Weight: 52.15 kg

DRUGS (34)
  1. UPTRAVI [Suspect]
     Active Substance: SELEXIPAG
     Dosage: 800 MCG, BID
     Route: 048
  2. UPTRAVI [Suspect]
     Active Substance: SELEXIPAG
     Dosage: 200 MCG, BID
     Route: 048
     Dates: start: 20190704
  3. TYVASO [Concomitant]
     Active Substance: TREPROSTINIL
  4. PRADAXA [Concomitant]
     Active Substance: DABIGATRAN ETEXILATE MESYLATE
  5. ADVAIR HFA [Concomitant]
     Active Substance: FLUTICASONE PROPIONATE\SALMETEROL XINAFOATE
  6. SPIRIVA [Concomitant]
     Active Substance: TIOTROPIUM BROMIDE MONOHYDRATE
  7. TADALAFIL. [Concomitant]
     Active Substance: TADALAFIL
  8. FUROSEMIDE. [Concomitant]
     Active Substance: FUROSEMIDE
  9. SIMVASTATIN. [Concomitant]
     Active Substance: SIMVASTATIN
  10. GABAPENTIN. [Concomitant]
     Active Substance: GABAPENTIN
  11. OPSUMIT [Suspect]
     Active Substance: MACITENTAN
     Indication: PULMONARY HYPERTENSION
     Dosage: 10 MG, QD
     Route: 048
     Dates: start: 201601
  12. SOTALOL. [Concomitant]
     Active Substance: SOTALOL
  13. REFRESH TEARS [Concomitant]
     Active Substance: CARBOXYMETHYLCELLULOSE SODIUM
  14. METHOTREXATE. [Concomitant]
     Active Substance: METHOTREXATE
  15. SPIRONOLACTONE. [Concomitant]
     Active Substance: SPIRONOLACTONE
  16. OXYCODONE [Concomitant]
     Active Substance: OXYCODONE
  17. REVATIO [Concomitant]
     Active Substance: SILDENAFIL CITRATE
  18. ALBUTEROL HFA [Concomitant]
     Active Substance: ALBUTEROL SULFATE
  19. FOLIC ACID. [Concomitant]
     Active Substance: FOLIC ACID
  20. UPTRAVI [Suspect]
     Active Substance: SELEXIPAG
     Dosage: 1000 MCG, BID
     Route: 048
     Dates: start: 20190731
  21. UPTRAVI [Suspect]
     Active Substance: SELEXIPAG
     Dosage: 1200 MCG, BID
     Route: 048
  22. UPTRAVI [Suspect]
     Active Substance: SELEXIPAG
     Dosage: 1000 MCG AM, 1200 MCG PM
     Route: 048
  23. OMEPRAZOLE. [Concomitant]
     Active Substance: OMEPRAZOLE
  24. HYDROCORTISONE. [Concomitant]
     Active Substance: HYDROCORTISONE
  25. BETAMETHASONE. [Concomitant]
     Active Substance: BETAMETHASONE
  26. MIRALAX [Concomitant]
     Active Substance: POLYETHYLENE GLYCOL 3350
  27. UPTRAVI [Suspect]
     Active Substance: SELEXIPAG
     Indication: PULMONARY HYPERTENSION
     Dosage: 1400 MCG, BID
     Route: 048
  28. VENTOLIN HFA [Concomitant]
     Active Substance: ALBUTEROL SULFATE
  29. CLOBETASOL [Concomitant]
     Active Substance: CLOBETASOL
  30. SENNA [Concomitant]
     Active Substance: SENNA LEAF\SENNOSIDES\SENNOSIDES A AND B
  31. ESTRING [Concomitant]
     Active Substance: ESTRADIOL
  32. UPTRAVI [Suspect]
     Active Substance: SELEXIPAG
     Dosage: 200 MCG, BID
     Route: 048
     Dates: end: 20190618
  33. SILDENAFIL. [Concomitant]
     Active Substance: SILDENAFIL
  34. RESTASIS [Concomitant]
     Active Substance: CYCLOSPORINE

REACTIONS (14)
  - Hyperkalaemia [Recovering/Resolving]
  - Nausea [Not Recovered/Not Resolved]
  - Malaise [Recovering/Resolving]
  - Influenza like illness [Unknown]
  - Herpes zoster [Unknown]
  - Hip arthroplasty [Unknown]
  - Arthralgia [Not Recovered/Not Resolved]
  - Blood pressure decreased [Unknown]
  - Decreased appetite [Unknown]
  - Pain in jaw [Not Recovered/Not Resolved]
  - Weight decreased [Unknown]
  - Diarrhoea [Unknown]
  - Vomiting [Recovered/Resolved]
  - Feeling abnormal [Recovering/Resolving]

NARRATIVE: CASE EVENT DATE: 20190616
